FAERS Safety Report 23056840 (Version 1)
Quarter: 2023Q4

REPORT INFORMATION
  Report Type: Spontaneous
  Country: US (occurrence: US)
  Receive Date: 20231012
  Receipt Date: 20231012
  Transmission Date: 20240110
  Serious: Yes (Hospitalization)
  Sender: FDA-Public Use
  Company Number: US-TEVA-2023-US-2933069

PATIENT
  Age: 40 Year
  Sex: Male

DRUGS (3)
  1. BUPRENORPHINE\NALOXONE [Suspect]
     Active Substance: BUPRENORPHINE\NALOXONE
     Indication: Drug dependence
     Dosage: FORMULATION: FILM BUPRENORPHINE 2 MG/NALOXONE 0.5MG FILM
     Route: 065
  2. FENTANYL [Suspect]
     Active Substance: FENTANYL
     Indication: Product used for unknown indication
     Route: 042
  3. ONDANSETRON [Suspect]
     Active Substance: ONDANSETRON
     Indication: Vomiting
     Route: 048

REACTIONS (11)
  - Drug withdrawal syndrome [Unknown]
  - Anxiety [Recovering/Resolving]
  - Myalgia [Recovering/Resolving]
  - Rhinorrhoea [Recovering/Resolving]
  - Yawning [Recovering/Resolving]
  - Restlessness [Recovering/Resolving]
  - Piloerection [Recovering/Resolving]
  - Nausea [Recovering/Resolving]
  - Vomiting [Recovering/Resolving]
  - Drug ineffective [Unknown]
  - Drug dependence [Unknown]
